FAERS Safety Report 4376274-2 (Version None)
Quarter: 2004Q2

REPORT INFORMATION
  Report Type: 
  Country: None (occurrence: None)
  Receive Date: 20040608
  Receipt Date: 20040224
  Transmission Date: 20050107
  Serious: Yes (Other)
  Sender: FDA-Public Use
  Company Number: 200310654BCC

PATIENT

DRUGS (1)
  1. ALEVE [Suspect]

REACTIONS (1)
  - ANAPHYLACTIC SHOCK [None]
